FAERS Safety Report 9630741 (Version 1)
Quarter: 2013Q4

REPORT INFORMATION
  Report Type: Spontaneous
  Country: US (occurrence: None)
  Receive Date: 20131016
  Receipt Date: 20131016
  Transmission Date: 20140711
  Serious: Yes (Life-Threatening, Hospitalization)
  Sender: FDA-Public Use
  Company Number: 2013/192

PATIENT
  Age: 24 Year
  Sex: Female

DRUGS (3)
  1. AMLODIPINE [Suspect]
  2. SIMVASTATIN [Suspect]
  3. TRAZODONE [Suspect]

REACTIONS (11)
  - Intentional overdose [None]
  - Nausea [None]
  - Vomiting [None]
  - Diarrhoea [None]
  - Metabolic acidosis [None]
  - Continuous haemodiafiltration [None]
  - Anuria [None]
  - Lung infiltration [None]
  - Hypotension [None]
  - Rhabdomyolysis [None]
  - Renal tubular necrosis [None]
